FAERS Safety Report 8273615-0 (Version None)
Quarter: 2012Q2

REPORT INFORMATION
  Report Type: 
  Country: None (occurrence: None)
  Receive Date: 20120411
  Receipt Date: 20120201
  Transmission Date: 20120825
  Serious: No
  Sender: FDA-Public Use
  Company Number: US-TEVA-320542USA

PATIENT
  Sex: Female
  Weight: 68.1 kg

DRUGS (4)
  1. HYDROCODONE BITARTRATE [Concomitant]
  2. WELLBUTRIN [Concomitant]
  3. NUVIGIL [Suspect]
     Route: 048
  4. LOW DOSE STEROID [Concomitant]

REACTIONS (2)
  - SKIN DISORDER [None]
  - LICHEN SCLEROSUS [None]
